FAERS Safety Report 18744042 (Version 1)
Quarter: 2021Q1

REPORT INFORMATION
  Report Type: Spontaneous
  Country: US (occurrence: US)
  Receive Date: 20210114
  Receipt Date: 20210114
  Transmission Date: 20210419
  Serious: Yes (Other)
  Sender: FDA-Public Use
  Company Number: US-ASTRAZENECA-2021A002393

PATIENT
  Age: 54 Year
  Sex: Female

DRUGS (4)
  1. CLOPIDOGREL [Suspect]
     Active Substance: CLOPIDOGREL BISULFATE
     Route: 065
  2. TICAGRELOR. [Suspect]
     Active Substance: TICAGRELOR
     Route: 048
  3. PRASUGREL. [Suspect]
     Active Substance: PRASUGREL
     Route: 065
  4. ASPIRIN. [Concomitant]
     Active Substance: ASPIRIN

REACTIONS (3)
  - Neurological symptom [Recovered/Resolved]
  - Multiple-drug resistance [Unknown]
  - Device related thrombosis [Recovered/Resolved]
